FAERS Safety Report 11742833 (Version 1)
Quarter: 2015Q4

REPORT INFORMATION
  Report Type: Other
  Country: JP (occurrence: JP)
  Receive Date: 20151116
  Receipt Date: 20151116
  Transmission Date: 20160304
  Serious: Yes (Other)
  Sender: FDA-Public Use
  Company Number: JP-DEP_13039_2015

PATIENT

DRUGS (1)
  1. TAPENTADOL (TAPENTADOL) [Suspect]
     Active Substance: TAPENTADOL
     Indication: PRODUCT USED FOR UNKNOWN INDICATION
     Dosage: UNK
     Route: 048

REACTIONS (4)
  - Nausea [Unknown]
  - Delirium [Unknown]
  - Constipation [Unknown]
  - Somnolence [Unknown]
